FAERS Safety Report 7542330-0 (Version None)
Quarter: 2011Q2

REPORT INFORMATION
  Report Type: 
  Country: None (occurrence: None)
  Receive Date: 20110613
  Receipt Date: 20110609
  Transmission Date: 20111010
  Serious: Yes (Life-Threatening)
  Sender: FDA-Public Use
  Company Number: US-ASTRAZENECA-2011SE35138

PATIENT
  Age: 53 Year
  Sex: Male

DRUGS (4)
  1. MARCAINE [Suspect]
     Route: 053
  2. LIDOCAINE W/ EPINEPHRINE [Suspect]
     Dosage: 1:200,000
     Route: 053
  3. OMEPRAZOLE [Concomitant]
  4. PANTOPRAZOLE [Concomitant]

REACTIONS (1)
  - CARDIOGENIC SHOCK [None]
